FAERS Safety Report 19024737 (Version 1)
Quarter: 2021Q1

REPORT INFORMATION
  Report Type: Spontaneous
  Country: JP (occurrence: JP)
  Receive Date: 20210318
  Receipt Date: 20210318
  Transmission Date: 20210420
  Serious: Yes (Hospitalization, Other)
  Sender: FDA-Public Use
  Company Number: JP-TEVA-2021-JP-1884091

PATIENT
  Age: 8 Decade
  Sex: Male

DRUGS (2)
  1. AZILECT [Suspect]
     Active Substance: RASAGILINE MESYLATE
     Indication: PARKINSON^S DISEASE
     Dosage: 1 MILLIGRAM DAILY;
     Route: 048
  2. LEVODOPA UNK [Concomitant]
     Route: 065

REACTIONS (3)
  - Hallucination [Recovered/Resolved]
  - Cholelithotomy [Unknown]
  - Postoperative delirium [Unknown]
